FAERS Safety Report 20891582 (Version 1)
Quarter: 2022Q2

REPORT INFORMATION
  Report Type: Spontaneous
  Country: NP (occurrence: NP)
  Receive Date: 20220530
  Receipt Date: 20220530
  Transmission Date: 20220721
  Serious: Yes (Other)
  Sender: FDA-Public Use
  Company Number: NP-LUPIN PHARMACEUTICALS INC.-2022-07684

PATIENT
  Age: 15 Month
  Weight: 14 kg

DRUGS (2)
  1. CLOBETASOL [Suspect]
     Active Substance: CLOBETASOL
     Dosage: UNK
     Route: 061
  2. PREDNISOLONE [Concomitant]
     Active Substance: PREDNISOLONE
     Indication: IgA nephropathy
     Dosage: 5 MG, QD, MAINTENANCE DOSE
     Route: 063

REACTIONS (2)
  - Cushing^s syndrome [Recovered/Resolved]
  - Intentional product misuse to child [Unknown]
